FAERS Safety Report 7920662 (Version 3)
Quarter: 2018Q3

REPORT INFORMATION
  Report Type: Spontaneous
  Country: GB (occurrence: GB)
  Receive Date: 20110409
  Receipt Date: 20180704
  Transmission Date: 20181010
  Serious: Yes (Death, Other)
  Sender: FDA-Public Use
  Company Number: COL_08206_2011

PATIENT

DRUGS (8)
  1. ALVOGYL                            /00949001/ [Concomitant]
     Dosage: NI
  2. CITALOPRAM [Concomitant]
     Active Substance: CITALOPRAM HYDROBROMIDE
     Dosage: NI
  3. SYMBICORT [Concomitant]
     Active Substance: BUDESONIDE\FORMOTEROL FUMARATE DIHYDRATE
     Dosage: NI
  4. CHLORHEXIDINE MOUTHWASH UNSPECIFIED [Suspect]
     Active Substance: CHLORHEXIDINE GLUCONATE
     Indication: GINGIVITIS
     Dosage: NI/NI/
     Route: 048
  5. CHLORHEXIDINE MOUTHWASH UNSPECIFIED [Suspect]
     Active Substance: CHLORHEXIDINE GLUCONATE
     Indication: MUCOSAL INFLAMMATION
  6. CHLORHEXIDINE MOUTHWASH UNSPECIFIED [Suspect]
     Active Substance: CHLORHEXIDINE GLUCONATE
     Indication: POSTOPERATIVE WOUND INFECTION
  7. LORAZEPAM. [Concomitant]
     Active Substance: LORAZEPAM
     Dosage: NI
  8. RISPERIDONE. [Concomitant]
     Active Substance: RISPERIDONE
     Dosage: NI

REACTIONS (4)
  - Loss of consciousness [Not Recovered/Not Resolved]
  - Anaphylactic shock [Fatal]
  - Feeling hot [Not Recovered/Not Resolved]
  - Pruritus [Not Recovered/Not Resolved]

NARRATIVE: CASE EVENT DATE: 201102
